FAERS Safety Report 5712857-2 (Version None)
Quarter: 2008Q2

REPORT INFORMATION
  Report Type: 
  Country: None (occurrence: None)
  Receive Date: 20080422
  Receipt Date: 20080418
  Transmission Date: 20081010
  Serious: Yes (Other)
  Sender: FDA-Public Use
  Company Number: B0511806A

PATIENT
  Age: 23 Year
  Sex: Female
  Weight: 55 kg

DRUGS (7)
  1. RELENZA [Suspect]
     Indication: INFLUENZA
     Dosage: 10MG TWICE PER DAY
     Route: 055
     Dates: start: 20080227, end: 20080229
  2. FLUTIDE [Concomitant]
     Indication: ASTHMA
     Route: 055
     Dates: start: 20080114
  3. SINGULAIR [Concomitant]
     Indication: ASTHMA
     Route: 048
     Dates: start: 20080114
  4. ALLEGRA [Concomitant]
     Route: 048
     Dates: start: 20080215
  5. ALLELOCK [Concomitant]
     Route: 048
     Dates: start: 20080215
  6. PL [Concomitant]
     Indication: INFLUENZA
     Route: 048
     Dates: start: 20080215
  7. CALONAL [Concomitant]
     Indication: INFLUENZA
     Route: 048
     Dates: start: 20080215

REACTIONS (7)
  - ALANINE AMINOTRANSFERASE INCREASED [None]
  - ASPARTATE AMINOTRANSFERASE INCREASED [None]
  - BLOOD ALKALINE PHOSPHATASE INCREASED [None]
  - DRUG ERUPTION [None]
  - LIVER DISORDER [None]
  - RASH [None]
  - RASH ERYTHEMATOUS [None]
